FAERS Safety Report 6451424-2 (Version None)
Quarter: 2009Q4

REPORT INFORMATION
  Report Type: 
  Country: None (occurrence: None)
  Receive Date: 20091120
  Receipt Date: 20091120
  Transmission Date: 20100525
  Serious: No
  Sender: FDA-Public Use
  Company Number: None

PATIENT
  Sex: Male

DRUGS (1)
  1. VALPROIC ACID [Suspect]
     Dosage: 500 MG 2QD

REACTIONS (3)
  - DRUG INTOLERANCE [None]
  - GASTROINTESTINAL DISORDER [None]
  - PRODUCT SUBSTITUTION ISSUE [None]
